FAERS Safety Report 7216186-X (Version None)
Quarter: 2011Q1

REPORT INFORMATION
  Report Type: 
  Country: None (occurrence: None)
  Receive Date: 20110107
  Receipt Date: 20110104
  Transmission Date: 20110831
  Serious: Yes (Death)
  Sender: FDA-Public Use
  Company Number: GR-PFIZER INC-2011001256

PATIENT
  Age: 82 Year
  Sex: Female
  Weight: 60 kg

DRUGS (29)
  1. PIPERACILLIN AND TAZOBACTAM [Suspect]
     Dosage: 4500 UNK, 1X/DAY
     Route: 042
     Dates: start: 20090618, end: 20090618
  2. METRONIDAZOLE [Suspect]
     Indication: ABDOMINAL INFECTION
     Dosage: 500 UNK, 3X/DAY
     Route: 042
     Dates: start: 20090610, end: 20090615
  3. PIPERACILLIN AND TAZOBACTAM [Suspect]
     Indication: ABDOMINAL INFECTION
     Dosage: 4500 UNK, 3X/DAY
     Route: 042
     Dates: start: 20090616, end: 20090617
  4. FLUCONAZOLE [Suspect]
     Indication: ABDOMINAL INFECTION
     Dosage: 100 UNK, 1X/DAY
     Route: 042
     Dates: start: 20090716, end: 20090720
  5. GENTAMICIN [Suspect]
     Indication: ABDOMINAL INFECTION
     Dosage: 160 UNK, 3X/DAY
     Route: 042
     Dates: start: 20090720, end: 20090721
  6. PARACETAMOL [Suspect]
     Dosage: UNKNOWN
     Route: 042
  7. PIPERACILLIN AND TAZOBACTAM [Suspect]
     Dosage: 4500 UNK, 1X/DAY
     Route: 042
     Dates: start: 20090710, end: 20090710
  8. PIPERACILLIN AND TAZOBACTAM [Suspect]
     Dosage: 4500 UNK, 4X/DAY
     Route: 042
     Dates: start: 20090716, end: 20090716
  9. PIPERACILLIN AND TAZOBACTAM [Suspect]
     Dosage: 4500 UNK, 3X/DAY
     Route: 042
     Dates: start: 20090728, end: 20090821
  10. TIGECYCLINE [Suspect]
     Dosage: 50 UNK, 1X/DAY
     Route: 042
     Dates: start: 20090623, end: 20090623
  11. TIGECYCLINE [Suspect]
     Dosage: 50 UNK, 2X/DAY
     Route: 042
     Dates: start: 20090729, end: 20090812
  12. AMIKACIN [Suspect]
     Dosage: 1000 UNK, 1X/DAY
     Route: 042
     Dates: start: 20090616, end: 20090622
  13. AMOXYCILLIN/CLAVULANIC ACID [Suspect]
     Indication: ABDOMINAL INFECTION
     Dosage: (1000+0.2) UNK, 3XDAY
     Route: 042
     Dates: start: 20090621, end: 20090622
  14. PIPERACILLIN AND TAZOBACTAM [Suspect]
     Dosage: 4500 UNK, 3X/DAY
     Route: 042
     Dates: start: 20090704, end: 20090709
  15. TIGECYCLINE [Suspect]
     Indication: ABDOMINAL INFECTION
     Dosage: 50 UNK, 2X/DAY
     Route: 042
     Dates: start: 20090618, end: 20090622
  16. AMIKACIN [Suspect]
     Indication: ABDOMINAL INFECTION
     Dosage: 1000 UNK, 1X/DAY
     Route: 042
     Dates: start: 20090610, end: 20090613
  17. FUROSEMIDE [Suspect]
     Indication: ABDOMINAL INFECTION
     Dosage: UNKNOWN
     Route: 042
  18. PIPERACILLIN AND TAZOBACTAM [Suspect]
     Dosage: 4500 UNK, 2X/DAY
     Route: 042
     Dates: start: 20090703, end: 20090703
  19. METRONIDAZOLE [Suspect]
     Dosage: 500 UNK, 2X/DAY
     Route: 042
     Dates: start: 20090703, end: 20090703
  20. METRONIDAZOLE [Suspect]
     Dosage: 500 UNK, 3X/DAY
     Route: 042
     Dates: start: 20090704, end: 20090709
  21. AMOXYCILLIN/CLAVULANIC ACID [Suspect]
     Dosage: (1000+0.2) UNK, 3X/DAY
     Route: 042
     Dates: start: 20090623, end: 20090623
  22. COLISTIN [Suspect]
     Indication: ABDOMINAL INFECTION
     Dosage: 3000000 IU, 3X/DAY
     Route: 042
     Dates: start: 20090813, end: 20090821
  23. PIPERACILLIN AND TAZOBACTAM [Suspect]
     Dosage: 4500 UNK, 1X/DAY
     Route: 042
     Dates: start: 20090717, end: 20090717
  24. CEFOXITIN [Suspect]
     Indication: ABDOMINAL INFECTION
     Dosage: 1000 UNK, 3X/DAY
     Route: 042
     Dates: start: 20090610, end: 20090615
  25. METRONIDAZOLE [Suspect]
     Dosage: 500 UNK, 1X/DAY
     Route: 042
     Dates: start: 20090710, end: 20090710
  26. CIPROFLOXACIN [Suspect]
     Indication: ABDOMINAL INFECTION
     Dosage: 400 UNK, 2X/DAY
     Route: 042
     Dates: start: 20090625, end: 20090701
  27. TIGECYCLINE [Suspect]
     Dosage: 50 UNK, 1X/DAY
     Route: 042
     Dates: start: 20090728, end: 20090728
  28. LINEZOLID [Suspect]
     Indication: ABDOMINAL INFECTION
     Dosage: 2000 UNK, 1X/DAY
     Route: 042
     Dates: start: 20090719, end: 20090720
  29. CASPOFUNGIN [Suspect]
     Indication: ABDOMINAL INFECTION
     Dosage: 50 MG, 1X/DAY
     Route: 042
     Dates: start: 20090813, end: 20090821

REACTIONS (1)
  - DEATH [None]
